FAERS Safety Report 17697501 (Version 1)
Quarter: 2020Q2

REPORT INFORMATION
  Report Type: Spontaneous
  Country: US (occurrence: US)
  Receive Date: 20200423
  Receipt Date: 20200423
  Transmission Date: 20200714
  Serious: No
  Sender: FDA-Public Use
  Company Number: US-GILEAD-2020-0459904

PATIENT
  Sex: Male

DRUGS (6)
  1. REXULTI [Concomitant]
     Active Substance: BREXPIPRAZOLE
  2. PALIPERIDONE ER [Concomitant]
     Active Substance: PALIPERIDONE
  3. SOFOSBUVIR;VELPATASVIR [Suspect]
     Active Substance: SOFOSBUVIR\VELPATASVIR
     Indication: CHRONIC HEPATITIS C
     Dosage: 1 DOSAGE FORM, QD
     Route: 048
     Dates: start: 202001, end: 20200415
  4. TEMAZEPAM. [Concomitant]
     Active Substance: TEMAZEPAM
  5. MORPHINE SULFATE. [Concomitant]
     Active Substance: MORPHINE SULFATE
  6. TRINTELLIX [Concomitant]
     Active Substance: VORTIOXETINE HYDROBROMIDE

REACTIONS (1)
  - Fatigue [Recovered/Resolved with Sequelae]
